FAERS Safety Report 9072061 (Version 1)
Quarter: 2013Q1

REPORT INFORMATION
  Report Type: Spontaneous
  Country: US (occurrence: US)
  Receive Date: 20130206
  Receipt Date: 20130206
  Transmission Date: 20140127
  Serious: No
  Sender: FDA-Public Use
  Company Number: US-ALLERGAN-1215726US

PATIENT
  Age: 61 Year
  Sex: Female

DRUGS (4)
  1. RESTASIS? [Suspect]
     Indication: DRY EYE
     Dosage: 2 GTT, BID
     Route: 047
     Dates: start: 201209
  2. ALLEGRA                            /01314201/ [Concomitant]
     Indication: HYPERSENSITIVITY
     Dosage: UNK UNK, QD
     Route: 048
  3. IBUPROFEN [Concomitant]
     Indication: BACK PAIN
     Dosage: UNK
  4. MUSCLE RELAXANTS [Concomitant]
     Indication: BACK PAIN
     Dosage: UNK

REACTIONS (2)
  - Eye pain [Recovered/Resolved]
  - Headache [Recovered/Resolved]
